FAERS Safety Report 25719940 (Version 1)
Quarter: 2025Q3

REPORT INFORMATION
  Report Type: Spontaneous
  Country: GB (occurrence: GB)
  Receive Date: 20250825
  Receipt Date: 20250825
  Transmission Date: 20251020
  Serious: Yes (Other)
  Sender: JUBILANT
  Company Number: None

PATIENT
  Age: 70 Year
  Sex: Female
  Weight: 51 kg

DRUGS (19)
  1. SOLIFENACIN SUCCINATE [Suspect]
     Active Substance: SOLIFENACIN SUCCINATE
     Indication: Product used for unknown indication
     Dosage: 5 ML, ONCE PER DAY (1MG/ML)
     Route: 048
     Dates: start: 20250805
  2. NYSTATIN [Concomitant]
     Active Substance: NYSTATIN
     Indication: Product used for unknown indication
     Dosage: 1 ML, 4 TIMES PER DAY
     Route: 048
     Dates: start: 20250529, end: 20250605
  3. SEVODYNE [Concomitant]
     Indication: Product used for unknown indication
     Dosage: 1 DOSAGE FORM, PER WEEK (APPLY ONE WEEKLY)
     Route: 065
     Dates: start: 20250613
  4. CHOLECALCIFEROL [Concomitant]
     Active Substance: CHOLECALCIFEROL
     Indication: Product used for unknown indication
     Dosage: 1 DOSAGE FORM, PER WEEK ON A SUNDAY
     Route: 048
     Dates: start: 20241112
  5. LORATADINE [Concomitant]
     Active Substance: LORATADINE
     Indication: Product used for unknown indication
     Dosage: 1 DOSAGE FORM, ONCE PER DAY
     Route: 048
     Dates: start: 20241112
  6. PEPPERMINT OIL [Concomitant]
     Active Substance: PEPPERMINT OIL
     Indication: Product used for unknown indication
     Dosage: 1 DOSAGE FORM, 3 TIMES PER DAY
     Route: 048
     Dates: start: 20241112
  7. ALBUTEROL [Concomitant]
     Active Substance: ALBUTEROL
     Indication: Product used for unknown indication
     Dosage: UNK UNK, 4 TIMES PER DAY ((INHALE 2 DOSES TO BE TAKEN FOUR TIMES DAILY WHE...))
     Dates: start: 20241112
  8. FLUTICASONE PROPIONATE\SALMETEROL XINAFOATE [Concomitant]
     Active Substance: FLUTICASONE PROPIONATE\SALMETEROL XINAFOATE
     Indication: Product used for unknown indication
     Dosage: 1 DOSAGE FORM, 2 TIMES PER DAY
     Dates: start: 20241112
  9. SPIRIVA [Concomitant]
     Active Substance: TIOTROPIUM BROMIDE MONOHYDRATE
     Indication: Product used for unknown indication
     Dosage: 1 DOSAGE FORM, ONCE PER DAY
     Dates: start: 20241112
  10. BUPRENORPHINE [Concomitant]
     Active Substance: BUPRENORPHINE
     Indication: Product used for unknown indication
     Dosage: 1 DOSAGE FORM, PER WEEK (APPLY ONE WEEKLY)
     Route: 065
     Dates: start: 20241217, end: 20250613
  11. DIAZEPAM [Concomitant]
     Active Substance: DIAZEPAM
     Indication: Product used for unknown indication
     Dosage: 1 DOSAGE FORM, 3 TIMES PER DAY
     Route: 048
     Dates: start: 20241217
  12. DOXYCYCLINE [Concomitant]
     Active Substance: DOXYCYCLINE
     Indication: Product used for unknown indication
     Dosage: TWO NOW THEN ONE DAILY
     Route: 048
     Dates: start: 20250703, end: 20250703
  13. DOXYCYCLINE [Concomitant]
     Active Substance: DOXYCYCLINE
     Route: 048
     Dates: start: 20250704, end: 20250708
  14. NITROFURANTOIN [Concomitant]
     Active Substance: NITROFURANTOIN
     Indication: Product used for unknown indication
     Dosage: 1 DOSAGE FORM, 2 TIMES PER DAY
     Route: 065
     Dates: start: 20250716, end: 20250723
  15. FLUCONAZOLE [Concomitant]
     Active Substance: FLUCONAZOLE
     Indication: Product used for unknown indication
     Dosage: 5 ML, ONCE PER DAY
     Route: 048
     Dates: start: 20250716, end: 20250723
  16. MICONAZOLE [Concomitant]
     Active Substance: MICONAZOLE
     Indication: Product used for unknown indication
     Dosage: UNK UNK, 4 TIMES PER DAY
     Route: 065
     Dates: start: 20250721, end: 20250726
  17. OPTIFLO S [Concomitant]
     Indication: Product used for unknown indication
     Route: 065
     Dates: start: 20250513, end: 20250610
  18. CYCLIZINE [Concomitant]
     Active Substance: CYCLIZINE
     Indication: Product used for unknown indication
     Route: 048
     Dates: start: 20241112
  19. IVABRADINE [Concomitant]
     Active Substance: IVABRADINE
     Indication: Product used for unknown indication
     Dosage: 0.5 DOSAGE FORM, 2 TIMES PER DAY
     Route: 048
     Dates: start: 20241209

REACTIONS (3)
  - Pharyngeal swelling [Recovered/Resolved]
  - Oral mucosal blistering [Recovering/Resolving]
  - Tachycardia [Recovering/Resolving]

NARRATIVE: CASE EVENT DATE: 20250811
